FAERS Safety Report 15182205 (Version 1)
Quarter: 2018Q3

REPORT INFORMATION
  Report Type: Other
  Country: JP (occurrence: JP)
  Receive Date: 20180723
  Receipt Date: 20180723
  Transmission Date: 20181010
  Serious: Yes (Other)
  Sender: FDA-Public Use
  Company Number: JP-ACTELION-A-CH2018-175439

PATIENT
  Age: 49 Week

DRUGS (5)
  1. NITRIC OXIDE. [Concomitant]
     Active Substance: NITRIC OXIDE
     Route: 055
  2. DEXAMETHASONE. [Concomitant]
     Active Substance: DEXAMETHASONE
  3. SILDENAFIL. [Concomitant]
     Active Substance: SILDENAFIL
     Route: 048
  4. OXYGEN. [Concomitant]
     Active Substance: OXYGEN
  5. EPOPROSTENOL SODIUM. [Suspect]
     Active Substance: EPOPROSTENOL SODIUM
     Indication: PULMONARY HYPERTENSION
     Route: 042

REACTIONS (2)
  - Tracheostomy [Unknown]
  - Drug ineffective [Unknown]
